FAERS Safety Report 21706006 (Version 1)
Quarter: 2022Q4

REPORT INFORMATION
  Report Type: Spontaneous
  Country: US (occurrence: US)
  Receive Date: 20221209
  Receipt Date: 20221209
  Transmission Date: 20230113
  Serious: Yes (Other)
  Sender: FDA-Public Use
  Company Number: US-SA-SAC20221208000873

PATIENT

DRUGS (1)
  1. DUPIXENT [Suspect]
     Active Substance: DUPILUMAB
     Dosage: DOSE 300MG, FREQUENCY: OTHER
     Route: 058

REACTIONS (5)
  - Nephrolithiasis [Unknown]
  - Laryngitis [Unknown]
  - Bronchitis [Unknown]
  - Fatigue [Recovering/Resolving]
  - Sinusitis [Unknown]
